FAERS Safety Report 6805723-2 (Version None)
Quarter: 2010Q2

REPORT INFORMATION
  Report Type: 
  Country: None (occurrence: None)
  Receive Date: 20100628
  Receipt Date: 20080625
  Transmission Date: 20101027
  Serious: No
  Sender: FDA-Public Use
  Company Number: US-PFIZER INC-2008039512

PATIENT
  Sex: Male
  Weight: 75 kg

DRUGS (2)
  1. SUTENT [Suspect]
     Indication: RENAL CANCER METASTATIC
     Dates: start: 20050601, end: 20071001
  2. SUTENT [Suspect]
     Indication: METASTASES TO LUNG

REACTIONS (2)
  - MUSCULAR WEAKNESS [None]
  - MYALGIA [None]
